FAERS Safety Report 5355425-7 (Version None)
Quarter: 2007Q2

REPORT INFORMATION
  Report Type: 
  Country: None (occurrence: None)
  Receive Date: 20070611
  Receipt Date: 20070611
  Transmission Date: 20071010
  Serious: No
  Sender: FDA-Public Use
  Company Number: None

PATIENT
  Age: 57 Year
  Sex: Male
  Weight: 131.9967 kg

DRUGS (1)
  1. LORAZEPAM [Suspect]
     Indication: SEDATION

REACTIONS (1)
  - CARDIO-RESPIRATORY ARREST [None]
